FAERS Safety Report 19310071 (Version 2)
Quarter: 2021Q2

REPORT INFORMATION
  Report Type: Spontaneous
  Country: NL (occurrence: NL)
  Receive Date: 20210526
  Receipt Date: 20210623
  Transmission Date: 20210717
  Serious: Yes (Other)
  Sender: FDA-Public Use
  Company Number: NL-REGENERON PHARMACEUTICALS, INC.-2021-53777

PATIENT

DRUGS (2)
  1. EYLEA [Suspect]
     Active Substance: AFLIBERCEPT
     Indication: CHORIORETINAL ATROPHY
     Dosage: 1 DF, ONCE; OS ? 1ST INJECTION
     Route: 031
     Dates: start: 20201012, end: 20201012
  2. EYLEA [Suspect]
     Active Substance: AFLIBERCEPT
     Indication: CHOROIDAL NEOVASCULARISATION

REACTIONS (3)
  - Blindness transient [Recovered/Resolved]
  - Device use issue [Unknown]
  - Off label use [Unknown]

NARRATIVE: CASE EVENT DATE: 20201012
